FAERS Safety Report 5099939-6 (Version None)
Quarter: 2006Q3

REPORT INFORMATION
  Report Type: 
  Country: None (occurrence: None)
  Receive Date: 20060908
  Receipt Date: 20060726
  Transmission Date: 20061208
  Serious: Yes (Life-Threatening, Hospitalization, Other)
  Sender: FDA-Public Use
  Company Number: JP-BRISTOL-MYERS SQUIBB COMPANY-13461165

PATIENT
  Age: 73 Year
  Sex: Female

DRUGS (13)
  1. GATIFLO TABS 100 MG [Suspect]
     Indication: ATYPICAL MYCOBACTERIAL INFECTION
     Dosage: THERAPY STOPPED IN JUL-2006 AND RESTARTED ON 21-JUL-2006.
     Route: 048
     Dates: start: 20060420, end: 20060714
  2. GATIFLO TABS 100 MG [Suspect]
     Route: 048
     Dates: start: 20060721, end: 20060722
  3. ROCORNAL [Suspect]
     Indication: ANGINA UNSTABLE
     Route: 048
     Dates: start: 20060713
  4. VASOLAN [Suspect]
     Indication: ANGINA UNSTABLE
     Route: 048
     Dates: start: 20060713
  5. CLEANAL [Concomitant]
     Route: 048
     Dates: start: 20020620
  6. SELBEX [Concomitant]
     Route: 048
     Dates: start: 20000501
  7. RIFAMPICIN [Concomitant]
     Route: 048
     Dates: start: 20060420
  8. CERCINE [Concomitant]
     Route: 048
     Dates: start: 19970908
  9. BUFFERIN [Concomitant]
     Route: 048
     Dates: start: 20060414
  10. PANALDINE [Concomitant]
     Route: 048
     Dates: start: 20060414
  11. LIPITOR [Concomitant]
     Route: 048
     Dates: start: 20060414
  12. LENDORMIN [Concomitant]
     Route: 048
     Dates: start: 19991203
  13. NITROGLYCERIN [Concomitant]
     Route: 062
     Dates: start: 20060605

REACTIONS (3)
  - DRUG INTERACTION [None]
  - HYPOGLYCAEMIA [None]
  - TREMOR [None]
